FAERS Safety Report 6914304-1 (Version None)
Quarter: 2010Q3

REPORT INFORMATION
  Report Type: 
  Country: None (occurrence: None)
  Receive Date: 20100809
  Receipt Date: 20100802
  Transmission Date: 20110219
  Serious: Yes (Other)
  Sender: FDA-Public Use
  Company Number: B0668780A

PATIENT

DRUGS (1)
  1. ALKERAN [Suspect]
     Dosage: 50MG UNKNOWN
     Route: 042

REACTIONS (5)
  - CELLULITIS STAPHYLOCOCCAL [None]
  - DIARRHOEA [None]
  - NEUTROPENIA [None]
  - STAPHYLOCOCCAL INFECTION [None]
  - STOMATITIS [None]
